FAERS Safety Report 13474113 (Version 1)
Quarter: 2017Q2

REPORT INFORMATION
  Report Type: Spontaneous
  Country: US (occurrence: US)
  Receive Date: 20170424
  Receipt Date: 20170424
  Transmission Date: 20170830
  Serious: Yes (Hospitalization)
  Sender: FDA-Public Use
  Company Number: US-SA-2016SA129340

PATIENT
  Age: 60 Year
  Sex: Female

DRUGS (1)
  1. LOVENOX [Suspect]
     Active Substance: ENOXAPARIN SODIUM
     Indication: HEART VALVE REPLACEMENT
     Route: 051
     Dates: end: 20160707

REACTIONS (2)
  - Haemoglobin decreased [Recovered/Resolved]
  - Pericardial haemorrhage [Not Recovered/Not Resolved]
